FAERS Safety Report 18355155 (Version 1)
Quarter: 2020Q4

REPORT INFORMATION
  Report Type: Spontaneous
  Country: US (occurrence: US)
  Receive Date: 20201006
  Receipt Date: 20201006
  Transmission Date: 20210114
  Serious: Yes (Life-Threatening)
  Sender: FDA-Public Use
  Company Number: None

PATIENT
  Age: 38 Year
  Sex: Male
  Weight: 112.49 kg

DRUGS (1)
  1. GADOTERIDOL (GADOTERIDOL 279.3MG/ML INJ) [Suspect]
     Active Substance: GADOTERIDOL
     Indication: BACK PAIN
     Route: 042
     Dates: start: 20200917, end: 20200917

REACTIONS (6)
  - Back pain [None]
  - Chest pain [None]
  - Anaphylactic reaction [None]
  - Respiratory depression [None]
  - Hypotension [None]
  - Hypoxia [None]

NARRATIVE: CASE EVENT DATE: 20200917
